FAERS Safety Report 10528465 (Version 1)
Quarter: 2014Q4

REPORT INFORMATION
  Report Type: Spontaneous
  Country: US (occurrence: None)
  Receive Date: 20141017
  Receipt Date: 20141017
  Transmission Date: 20150528
  Serious: Yes (Other)
  Sender: FDA-Public Use
  Company Number: None

PATIENT
  Age: 59 Year
  Sex: Female
  Weight: 41.73 kg

DRUGS (1)
  1. FORADIL [Suspect]
     Active Substance: FORMOTEROL FUMARATE
     Indication: LUNG DISORDER
     Dosage: 1 CAPSULE TWICE DAILY TAKEN BY MOUTH TIL LUNGS NO LONGER PROBLEMATIC
     Route: 048

REACTIONS (3)
  - Foreign body aspiration [None]
  - Bronchial irritation [None]
  - Device malfunction [None]

NARRATIVE: CASE EVENT DATE: 20141012
